FAERS Safety Report 5590910-4 (Version None)
Quarter: 2007Q4

REPORT INFORMATION
  Report Type: 
  Country: None (occurrence: None)
  Receive Date: 20071214
  Receipt Date: 20070628
  Transmission Date: 20080405
  Serious: Yes (Death)
  Sender: FDA-Public Use
  Company Number: 2007034828

PATIENT
  Age: 27 Year
  Sex: Female

DRUGS (4)
  1. XANAX [Suspect]
  2. DARVOCET [Suspect]
  3. SYMBYAX [Suspect]
  4. ALL OTHER THERAPEUTIC PRODUCTS (ALL OTHER THERAPEUTIC PRODUCTS) [Suspect]

REACTIONS (1)
  - OVERDOSE [None]
